FAERS Safety Report 24806906 (Version 2)
Quarter: 2025Q1

REPORT INFORMATION
  Report Type: Spontaneous
  Country: US (occurrence: US)
  Receive Date: 20250104
  Receipt Date: 20250321
  Transmission Date: 20250409
  Serious: Yes (Other)
  Sender: AUROBINDO
  Company Number: US-AUROBINDO-AUR-APL-2024-062521

PATIENT
  Age: 89 Year
  Sex: Male

DRUGS (11)
  1. DORZOLAMIDE HYDROCHLORIDE\TIMOLOL MALEATE [Suspect]
     Active Substance: DORZOLAMIDE HYDROCHLORIDE\TIMOLOL MALEATE
     Indication: Glaucoma
     Dosage: 3 TIMES A DAY
     Route: 065
  2. ATROPINE [Suspect]
     Active Substance: ATROPINE
     Indication: Hypotony of eye
     Dosage: UNK, TWO TIMES A DAY
     Route: 065
  3. ATROPINE [Suspect]
     Active Substance: ATROPINE
     Indication: Choroidal detachment
  4. BRIMONIDINE [Suspect]
     Active Substance: BRIMONIDINE TARTRATE
     Indication: Glaucoma
     Dosage: 3 TIMES A DAY
     Route: 065
  5. DIFLUPREDNATE [Suspect]
     Active Substance: DIFLUPREDNATE
     Indication: Hypotony of eye
     Route: 061
  6. DIFLUPREDNATE [Suspect]
     Active Substance: DIFLUPREDNATE
     Indication: Choroidal detachment
  7. PREDNISOLONE [Suspect]
     Active Substance: PREDNISOLONE
     Indication: Glaucoma
     Dosage: FOUR TIMES/DAY
     Route: 065
  8. TRIAMCINOLONE [Suspect]
     Active Substance: TRIAMCINOLONE
     Indication: Hypotony of eye
     Route: 065
  9. TRIAMCINOLONE [Suspect]
     Active Substance: TRIAMCINOLONE
     Indication: Choroidal detachment
  10. BEVACIZUMAB [Concomitant]
     Active Substance: BEVACIZUMAB
     Indication: Product used for unknown indication
     Route: 065
  11. KENALOG [Concomitant]
     Active Substance: TRIAMCINOLONE ACETONIDE
     Indication: Product used for unknown indication
     Route: 065

REACTIONS (1)
  - Drug ineffective [Unknown]
